FAERS Safety Report 22535934 (Version 1)
Quarter: 2023Q2

REPORT INFORMATION
  Report Type: Spontaneous
  Country: US (occurrence: None)
  Receive Date: 20230607
  Receipt Date: 20230607
  Transmission Date: 20230722
  Serious: Yes (Other)
  Sender: FDA-Public Use
  Company Number: None

PATIENT
  Age: 71 Year
  Sex: Female
  Weight: 71.2 kg

DRUGS (1)
  1. TIROFIBAN [Suspect]
     Active Substance: TIROFIBAN
     Indication: Acute myocardial infarction
     Dosage: 639 UGM/HR MICROGRAMS PER HOUR ONCE INTRAVENOUS DRIP
     Route: 041
     Dates: start: 20230606, end: 20230607

REACTIONS (2)
  - Adverse drug reaction [None]
  - Thrombocytopenia [None]

NARRATIVE: CASE EVENT DATE: 20230607
